FAERS Safety Report 23980957 (Version 1)
Quarter: 2024Q2

REPORT INFORMATION
  Report Type: Spontaneous
  Country: FR (occurrence: FR)
  Receive Date: 20240617
  Receipt Date: 20240617
  Transmission Date: 20240715
  Serious: Yes (Hospitalization, Other)
  Sender: FDA-Public Use
  Company Number: None

PATIENT

DRUGS (1)
  1. JEMPERLI [Suspect]
     Active Substance: DOSTARLIMAB-GXLY
     Indication: Endometrial cancer metastatic
     Dosage: 500 MG, Q3W (6 CURES)
     Route: 042
     Dates: start: 20240108, end: 20240430

REACTIONS (2)
  - Glomerulonephritis rapidly progressive [Not Recovered/Not Resolved]
  - Cryoglobulinaemia [Not Recovered/Not Resolved]

NARRATIVE: CASE EVENT DATE: 20240514
